FAERS Safety Report 8558397-7 (Version None)
Quarter: 2012Q3

REPORT INFORMATION
  Report Type: 
  Country: None (occurrence: None)
  Receive Date: 20120801
  Receipt Date: 20120719
  Transmission Date: 20120928
  Serious: No
  Sender: FDA-Public Use
  Company Number: US-ASTRAZENECA-2012SE51221

PATIENT
  Age: 53 Year
  Sex: Female

DRUGS (1)
  1. SEROQUEL XR [Suspect]
     Route: 048

REACTIONS (5)
  - MALAISE [None]
  - DRUG WITHDRAWAL SYNDROME [None]
  - CHILLS [None]
  - HYPERHIDROSIS [None]
  - DRUG DOSE OMISSION [None]
